FAERS Safety Report 20826576 (Version 2)
Quarter: 2022Q3

REPORT INFORMATION
  Report Type: Report from Study
  Country: CA (occurrence: CA)
  Receive Date: 20220513
  Receipt Date: 20220810
  Transmission Date: 20221027
  Serious: Yes (Death, Hospitalization, Other)
  Sender: FDA-Public Use
  Company Number: CA-BRISTOL-MYERS SQUIBB COMPANY-2022-033960

PATIENT
  Age: 62 Year
  Sex: Female

DRUGS (7)
  1. INREBIC [Suspect]
     Active Substance: FEDRATINIB HYDROCHLORIDE
     Indication: Primary myelofibrosis
     Dosage: CONTINUED UNTIL DEATH
     Route: 048
     Dates: start: 20220301
  2. HYDROXYUREA [Concomitant]
     Active Substance: HYDROXYUREA
     Indication: Myelofibrosis
     Dosage: DAILY
     Route: 048
  3. TINZAPARIN [Concomitant]
     Active Substance: TINZAPARIN
     Indication: Splenic thrombosis
     Dosage: UNTIL DEATH
     Route: 058
  4. HYDROXYCHLOROQUINE [Concomitant]
     Active Substance: HYDROXYCHLOROQUINE
     Indication: Rheumatoid arthritis
     Dosage: GREATER THAN 10 YEARS DAILY UNTIL DEATH
     Route: 048
  5. LAMIVUDINE [Concomitant]
     Active Substance: LAMIVUDINE
     Indication: Antiviral prophylaxis
     Dosage: DAILY UNTIL DEATH
     Route: 048
  6. TYLENOL [Concomitant]
     Active Substance: ACETAMINOPHEN
     Indication: Pain
     Dosage: 1-2 TABLETS PRN UNTIL DEATH
     Route: 048
  7. DOXEPIN [Concomitant]
     Active Substance: DOXEPIN
     Indication: Insomnia
     Dosage: QHS PRN
     Route: 048

REACTIONS (2)
  - Acute myocardial infarction [Fatal]
  - Cardiac arrest [Fatal]

NARRATIVE: CASE EVENT DATE: 20220426
